FAERS Safety Report 11213110 (Version 1)
Quarter: 2015Q2

REPORT INFORMATION
  Report Type: Spontaneous
  Country: None (occurrence: None)
  Receive Date: 20150622
  Receipt Date: 20150622
  Transmission Date: 20150821
  Serious: Yes (Disabling)
  Sender: FDA-Public Use
  Company Number: None

PATIENT
  Age: 21 Year
  Sex: Female
  Weight: 63.5 kg

DRUGS (2)
  1. IMPLANON [Suspect]
     Active Substance: ETONOGESTREL
     Dosage: IMPLANT  INTO THE MUSCLE
     Route: 030
     Dates: start: 20141215, end: 20150618
  2. METROPROLOL [Concomitant]
     Active Substance: METOPROLOL

REACTIONS (4)
  - Depression [None]
  - Nervousness [None]
  - Anxiety [None]
  - Mood swings [None]

NARRATIVE: CASE EVENT DATE: 20150618
